FAERS Safety Report 13318030 (Version 1)
Quarter: 2017Q1

REPORT INFORMATION
  Report Type: Spontaneous
  Country: US (occurrence: US)
  Receive Date: 20170310
  Receipt Date: 20170310
  Transmission Date: 20170428
  Serious: No
  Sender: FDA-Public Use
  Company Number: US-PFIZER INC-2017103464

PATIENT
  Sex: Female

DRUGS (2)
  1. ATIVAN [Suspect]
     Active Substance: LORAZEPAM
     Dosage: UNK, 1X/DAY (DURING THE DAY)
  2. XANAX [Suspect]
     Active Substance: ALPRAZOLAM
     Dosage: UNK, 1X/DAY (AT NIGHT)

REACTIONS (2)
  - Tremor [Unknown]
  - Nervousness [Unknown]
